FAERS Safety Report 11130218 (Version 1)
Quarter: 2015Q2

REPORT INFORMATION
  Report Type: Spontaneous
  Country: CH (occurrence: CH)
  Receive Date: 20150522
  Receipt Date: 20150522
  Transmission Date: 20150821
  Serious: Yes (Hospitalization)
  Sender: FDA-Public Use
  Company Number: CH-ROCHE-1581334

PATIENT
  Age: 82 Year
  Sex: Male

DRUGS (5)
  1. SAROTEN [Concomitant]
     Active Substance: AMITRIPTYLINE
  2. LUCENTIS [Suspect]
     Active Substance: RANIBIZUMAB
     Indication: NEOVASCULAR AGE-RELATED MACULAR DEGENERATION
     Route: 065
     Dates: start: 201203
  3. PANPRAX [Concomitant]
     Active Substance: PANTOPRAZOLE SODIUM
  4. GINKGO [Concomitant]
     Active Substance: GINKGO
  5. LUCENTIS [Suspect]
     Active Substance: RANIBIZUMAB
     Route: 065
     Dates: start: 20150210, end: 20150210

REACTIONS (1)
  - Pulmonary embolism [Unknown]

NARRATIVE: CASE EVENT DATE: 20150305
